FAERS Safety Report 25611207 (Version 1)
Quarter: 2025Q3

REPORT INFORMATION
  Report Type: Spontaneous
  Country: US (occurrence: None)
  Receive Date: 20250725
  Receipt Date: 20250725
  Transmission Date: 20251020
  Serious: Yes (Hospitalization)
  Sender: FDA-CTU
  Company Number: None

PATIENT
  Age: 72 Year
  Sex: Male

DRUGS (13)
  1. MYCOPHENOLIC ACID [Suspect]
     Active Substance: MYCOPHENOLIC ACID
     Indication: Lung transplant
     Dosage: FREQUENCY : TWICE A DAY;?
     Route: 048
     Dates: start: 20250703
  2. TACROLIMUS [Suspect]
     Active Substance: TACROLIMUS
     Indication: Lung transplant
     Dosage: FREQUENCY : TWICE A DAY;?
     Route: 048
     Dates: start: 20250703
  3. ZINC [Concomitant]
     Active Substance: ZINC
  4. PREDNISONE [Concomitant]
     Active Substance: PREDNISONE
  5. METOCLOPRAMIDE 5MG TABLETS [Concomitant]
  6. MIRTAZAPINE [Concomitant]
     Active Substance: MIRTAZAPINE
  7. FUROSEMIDE [Concomitant]
     Active Substance: FUROSEMIDE
  8. PHOSPHORUS SUPPLEMENT ORAL PACKET [Concomitant]
  9. ESZOPICLONE 1MG TABLETS [Concomitant]
  10. LEVOFLOXACIN [Concomitant]
     Active Substance: LEVOFLOXACIN
  11. PRIMIDONE S0MG TABLETS [Concomitant]
  12. BASAGLAR 100 U/ML [Concomitant]
  13. KWIKPEN INJ [Concomitant]

REACTIONS (2)
  - Lung transplant rejection [None]
  - Infection [None]

NARRATIVE: CASE EVENT DATE: 20250722
